FAERS Safety Report 8384078-9 (Version None)
Quarter: 2012Q2

REPORT INFORMATION
  Report Type: 
  Country: None (occurrence: None)
  Receive Date: 20120524
  Receipt Date: 20120516
  Transmission Date: 20120825
  Serious: Yes (Other)
  Sender: FDA-Public Use
  Company Number: US-ROCHE-1069946

PATIENT
  Sex: Male
  Weight: 170.25 kg

DRUGS (6)
  1. ALBUTEROL [Concomitant]
     Indication: ASTHMA
  2. SINGULAIR [Concomitant]
     Indication: ASTHMA
     Route: 048
  3. PROAIR HFA [Concomitant]
     Indication: ASTHMA
     Dosage: PROAIR HFA
  4. OMALIZUMAB [Suspect]
     Indication: ASTHMA
     Route: 058
     Dates: start: 20091201
  5. PREDNISONE [Concomitant]
     Indication: ASTHMA
     Route: 048
  6. SYMBICORT [Concomitant]
     Indication: ASTHMA

REACTIONS (3)
  - PULMONARY FIBROSIS [None]
  - CARDIAC DISORDER [None]
  - ASTHMA [None]
